FAERS Safety Report 8836348 (Version 2)
Quarter: 2013Q4

REPORT INFORMATION
  Report Type: Spontaneous
  Country: US (occurrence: US)
  Receive Date: 20121011
  Receipt Date: 20131120
  Transmission Date: 20140711
  Serious: No
  Sender: FDA-Public Use
  Company Number: US-ASTRAZENECA-2012SE76730

PATIENT
  Age: 87 Year
  Sex: Female

DRUGS (3)
  1. CRESTOR [Suspect]
     Indication: BLOOD CHOLESTEROL INCREASED
     Route: 048
  2. ATENOLOL [Suspect]
     Indication: CARDIAC DISORDER
     Route: 048
  3. PULMICORT TURBUHALER [Suspect]
     Indication: ASTHMA
     Dosage: 200 MCG BID
     Route: 055
     Dates: start: 2003, end: 20131107

REACTIONS (2)
  - Cardiac disorder [Unknown]
  - Intentional drug misuse [Unknown]
